FAERS Safety Report 9158219 (Version 1)
Quarter: 2013Q1

REPORT INFORMATION
  Report Type: Spontaneous
  Country: JP (occurrence: None)
  Receive Date: 20130211
  Receipt Date: 20130211
  Transmission Date: 20140127
  Serious: Yes (Other)
  Sender: FDA-Public Use
  Company Number: FK201300408

PATIENT
  Age: 60 Year
  Sex: Male

DRUGS (4)
  1. FLUOROURACIL [Suspect]
     Indication: COLON CANCER
     Dosage: 950 MG, 1 IN 1 WK
  2. ALEVIATIN [Suspect]
     Dosage: 220 MG, 1 IN 1 D
  3. PHENOBAL [Suspect]
     Dosage: 100 MG, 1 IN 1 D
  4. CALCIUM LEVOFOLINATE (CALCIUM LEVOFOLINATE) [Concomitant]

REACTIONS (9)
  - Drug interaction [None]
  - Toxicity to various agents [None]
  - Abdominal discomfort [None]
  - Nausea [None]
  - Epigastric discomfort [None]
  - Fatigue [None]
  - Vomiting [None]
  - Decreased appetite [None]
  - Eye disorder [None]
